FAERS Safety Report 10341392 (Version 1)
Quarter: 2014Q3

REPORT INFORMATION
  Report Type: Spontaneous
  Country: US (occurrence: US)
  Receive Date: 20140725
  Receipt Date: 20140725
  Transmission Date: 20150326
  Serious: No
  Sender: FDA-Public Use
  Company Number: US-009507513-1407USA010834

PATIENT
  Age: 34 Year
  Sex: Female
  Weight: 99.77 kg

DRUGS (3)
  1. SYNTHROID [Concomitant]
     Active Substance: LEVOTHYROXINE SODIUM
  2. NUVARING [Suspect]
     Active Substance: ETHINYL ESTRADIOL\ETONOGESTREL
     Indication: CONTRACEPTION
     Dosage: 3 WEEKS IN, NO BREAK
     Route: 067
     Dates: start: 200907
  3. NAPROXEN. [Concomitant]
     Active Substance: NAPROXEN

REACTIONS (3)
  - Device expulsion [Unknown]
  - Incorrect drug administration duration [Unknown]
  - Product shape issue [Unknown]

NARRATIVE: CASE EVENT DATE: 200907
